FAERS Safety Report 11288568 (Version 1)
Quarter: 2015Q3

REPORT INFORMATION
  Report Type: Spontaneous
  Country: US (occurrence: US)
  Receive Date: 20150721
  Receipt Date: 20150721
  Transmission Date: 20151125
  Serious: No
  Sender: FDA-Public Use
  Company Number: US-UNITED THERAPEUTICS-UNT-2015-003241

PATIENT
  Sex: Female
  Weight: 106.58 kg

DRUGS (2)
  1. REMODULIN [Suspect]
     Active Substance: TREPROSTINIL
     Indication: PULMONARY HYPERTENSION
     Dosage: 0.089 ?G/KG/MIN, CONTINUING
     Route: 058
     Dates: start: 20130703
  2. LETAIRIS [Concomitant]
     Active Substance: AMBRISENTAN
     Indication: PRODUCT USED FOR UNKNOWN INDICATION

REACTIONS (6)
  - Infusion site pain [Recovered/Resolved]
  - Infusion site erythema [Not Recovered/Not Resolved]
  - Injection site discharge [Recovered/Resolved]
  - Infusion site infection [Unknown]
  - Infusion site reaction [Unknown]
  - Infusion site oedema [Recovered/Resolved]
